FAERS Safety Report 7492809-5 (Version None)
Quarter: 2011Q2

REPORT INFORMATION
  Report Type: 
  Country: None (occurrence: None)
  Receive Date: 20110512
  Receipt Date: 20110415
  Transmission Date: 20111010
  Serious: Yes (Other)
  Sender: FDA-Public Use
  Company Number: OTC-2011-00007

PATIENT
  Sex: Female

DRUGS (1)
  1. NEUTROGENA SUN PROTECTION UNSPECIFIED [Suspect]
     Indication: PROPHYLAXIS AGAINST SOLAR RADIATION
     Dosage: TOPICAL
     Route: 061

REACTIONS (1)
  - NEOPLASM MALIGNANT [None]
